FAERS Safety Report 8188663-9 (Version None)
Quarter: 2012Q1

REPORT INFORMATION
  Report Type: 
  Country: None (occurrence: None)
  Receive Date: 20120306
  Receipt Date: 20120223
  Transmission Date: 20120608
  Serious: Yes (Other)
  Sender: FDA-Public Use
  Company Number: US-MYLANLABS-2012S1004361

PATIENT
  Age: 69 Year
  Sex: Female
  Weight: 90.72 kg

DRUGS (8)
  1. CELEBREX [Suspect]
     Indication: POLYARTHRITIS
  2. SIMVASTATIN [Suspect]
     Indication: BLOOD CHOLESTEROL INCREASED
     Dates: end: 20111001
  3. THIAZIDE [Concomitant]
     Indication: BLOOD PRESSURE INCREASED
  4. PROZAC [Concomitant]
     Dosage: 30MG, 20MG, AND 1MG UNKNOWN FREQUENCY
  5. LIPITOR [Suspect]
     Indication: BLOOD CHOLESTEROL INCREASED
     Route: 048
     Dates: start: 20111001
  6. NAPROXEN [Suspect]
     Indication: POLYARTHRITIS
     Dates: end: 20111201
  7. AMLODIPINE BESYLATE [Suspect]
     Indication: PULMONARY HYPERTENSION
     Dates: end: 20110101
  8. LEVOXYL [Concomitant]
     Indication: THYROIDECTOMY

REACTIONS (4)
  - OEDEMA PERIPHERAL [None]
  - PULMONARY HYPERTENSION [None]
  - DYSPNOEA [None]
  - CENTRAL NERVOUS SYSTEM LESION [None]
